FAERS Safety Report 15629923 (Version 1)
Quarter: 2018Q4

REPORT INFORMATION
  Report Type: Spontaneous
  Country: US (occurrence: US)
  Receive Date: 20181117
  Receipt Date: 20181117
  Transmission Date: 20190205
  Serious: Yes (Hospitalization)
  Sender: FDA-Public Use
  Company Number: US-MYLANLABS-2018M1086846

PATIENT
  Age: 16 Year
  Sex: Female

DRUGS (3)
  1. LITHIUM. [Suspect]
     Active Substance: LITHIUM
     Indication: BIPOLAR DISORDER
     Route: 065
  2. NORMAL SALINE [Concomitant]
     Active Substance: SODIUM CHLORIDE
     Indication: URINARY TRACT INFECTION
     Route: 065
  3. CEFTRIAXONE. [Concomitant]
     Active Substance: CEFTRIAXONE
     Indication: URINARY TRACT INFECTION
     Route: 065

REACTIONS (7)
  - Normocytic anaemia [Unknown]
  - Toxicity to various agents [Unknown]
  - Diabetes insipidus [Unknown]
  - Electrocardiogram PR prolongation [Unknown]
  - Metabolic acidosis [Unknown]
  - Acute kidney injury [Recovering/Resolving]
  - Encephalopathy [Unknown]
